FAERS Safety Report 24604324 (Version 1)
Quarter: 2024Q4

REPORT INFORMATION
  Report Type: Spontaneous
  Country: US (occurrence: US)
  Receive Date: 20241111
  Receipt Date: 20241111
  Transmission Date: 20250114
  Serious: No
  Sender: PFIZER
  Company Number: US-PFIZER INC-202400294794

PATIENT

DRUGS (2)
  1. VELSIPITY [Interacting]
     Active Substance: ETRASIMOD ARGININE
  2. VYVANSE [Interacting]
     Active Substance: LISDEXAMFETAMINE DIMESYLATE

REACTIONS (6)
  - Drug interaction [Unknown]
  - Headache [Unknown]
  - Hypertension [Unknown]
  - Chest pain [Unknown]
  - Pain in jaw [Unknown]
  - Vision blurred [Unknown]

NARRATIVE: CASE EVENT DATE: 20241030
